FAERS Safety Report 4608633-4 (Version None)
Quarter: 2005Q1

REPORT INFORMATION
  Report Type: 
  Country: None (occurrence: None)
  Receive Date: 20050311
  Receipt Date: 20050311
  Transmission Date: 20050727
  Serious: Yes (Hospitalization)
  Sender: FDA-Public Use
  Company Number: None

PATIENT
  Age: 75 Year
  Sex: Male
  Weight: 88.4514 kg

DRUGS (1)
  1. WARFARIN [Suspect]
     Indication: ATRIAL FIBRILLATION
     Dosage: 6 MG  DAILY ORAL
     Route: 048
     Dates: start: 20010801, end: 20050310

REACTIONS (4)
  - DRUG TOXICITY [None]
  - EPISTAXIS [None]
  - HAEMOPTYSIS [None]
  - TREATMENT NONCOMPLIANCE [None]
